FAERS Safety Report 9264309 (Version 2)
Quarter: 2013Q2

REPORT INFORMATION
  Report Type: Spontaneous
  Country: CA (occurrence: CA)
  Receive Date: 20130430
  Receipt Date: 20130621
  Transmission Date: 20140414
  Serious: Yes (Hospitalization)
  Sender: FDA-Public Use
  Company Number: CA-ELI_LILLY_AND_COMPANY-CA201304005916

PATIENT
  Age: 73 Year
  Sex: Female
  Weight: 81 kg

DRUGS (15)
  1. FORTEO [Suspect]
     Indication: OSTEOPOROSIS
     Dosage: 20 UG, QD
     Route: 058
     Dates: start: 20120916
  2. SENOKOT [Concomitant]
     Dosage: UNK, UNKNOWN
     Route: 065
  3. METAMUCIL [Concomitant]
     Dosage: UNK, UNKNOWN
     Route: 065
  4. DOCUSATE SODIUM [Concomitant]
     Dosage: UNK, UNKNOWN
     Route: 065
  5. BISOPROLOL [Concomitant]
     Dosage: UNK, UNKNOWN
     Route: 065
  6. EZETROL [Concomitant]
     Dosage: UNK, UNKNOWN
     Route: 065
  7. RANITIDINE [Concomitant]
     Dosage: UNK, UNKNOWN
     Route: 065
  8. BUSCOPAN [Concomitant]
     Dosage: UNK, UNKNOWN
     Route: 065
  9. ADVIL                              /00109201/ [Concomitant]
     Dosage: UNK, UNKNOWN
     Route: 065
  10. MULTIVITAMIN                       /00097801/ [Concomitant]
     Dosage: UNK, UNKNOWN
     Route: 065
  11. VITAMIN D [Concomitant]
     Dosage: UNK, UNKNOWN
     Route: 065
  12. LUTIN [Concomitant]
     Dosage: UNK, UNKNOWN
     Route: 065
  13. CRANBERRY [Concomitant]
     Dosage: UNK, UNKNOWN
     Route: 065
  14. OMEGA 3 [Concomitant]
     Dosage: UNK, UNKNOWN
     Route: 065
  15. ACIDOPHILUS [Concomitant]
     Dosage: UNK, UNKNOWN
     Route: 065

REACTIONS (1)
  - Gastric volvulus [Recovered/Resolved]
